FAERS Safety Report 14151876 (Version 1)
Quarter: 2017Q4

REPORT INFORMATION
  Report Type: Spontaneous
  Country: US (occurrence: US)
  Receive Date: 20171101
  Receipt Date: 20171101
  Transmission Date: 20180321
  Serious: No
  Sender: FDA-Public Use
  Company Number: None

PATIENT
  Age: 32 Year
  Sex: Male
  Weight: 58.5 kg

DRUGS (3)
  1. CITALOPRAM [Suspect]
     Active Substance: CITALOPRAM HYDROBROMIDE
  2. CETIRIZINE [Concomitant]
     Active Substance: CETIRIZINE HYDROCHLORIDE
  3. RANITIDINE. [Concomitant]
     Active Substance: RANITIDINE

REACTIONS (4)
  - Premature ejaculation [None]
  - Anhedonia [None]
  - Erectile dysfunction [None]
  - Loss of libido [None]

NARRATIVE: CASE EVENT DATE: 20171020
